FAERS Safety Report 7113383-9 (Version None)
Quarter: 2010Q4

REPORT INFORMATION
  Report Type: 
  Country: None (occurrence: None)
  Receive Date: 20101119
  Receipt Date: 20101111
  Transmission Date: 20110411
  Serious: Yes (Other)
  Sender: FDA-Public Use
  Company Number: PHHO2010US17036

PATIENT
  Age: 44 Year
  Sex: Female

DRUGS (4)
  1. FTY 720 FTY+ [Suspect]
     Indication: MULTIPLE SCLEROSIS
     Dosage: DOSE BLINDED
     Route: 048
  2. FTY 720 FTY+ [Suspect]
     Dosage: 1.25MG
     Route: 048
  3. FTY 720 FTY+ [Suspect]
     Dosage: 0.5MG
     Route: 048
  4. RIZATRIPTAN BENZOATE [Concomitant]
     Indication: MIGRAINE
     Dosage: 10 MG, PRN

REACTIONS (2)
  - ARTHRALGIA [None]
  - FALL [None]
